FAERS Safety Report 8272509-4 (Version None)
Quarter: 2012Q2

REPORT INFORMATION
  Report Type: 
  Country: None (occurrence: None)
  Receive Date: 20120410
  Receipt Date: 20120326
  Transmission Date: 20120825
  Serious: Yes (Other)
  Sender: FDA-Public Use
  Company Number: BR-NICOBRDEV-2012-06264

PATIENT
  Age: 61 Year
  Sex: Male

DRUGS (3)
  1. OXYBUTYNIN [Suspect]
     Indication: HYPERTONIC BLADDER
     Dosage: UNK
     Route: 065
  2. SUFENTANIL CITRATE [Suspect]
     Indication: SEDATION
     Dosage: UNK
     Route: 042
  3. FENTANYL CITRATE [Suspect]
     Indication: SPINAL ANAESTHESIA
     Dosage: 15 MCG, UNK
     Route: 037

REACTIONS (4)
  - HAEMATURIA [None]
  - DYSURIA [None]
  - PELVIC PAIN [None]
  - URINARY RETENTION [None]
